FAERS Safety Report 20559091 (Version 1)
Quarter: 2022Q1

REPORT INFORMATION
  Report Type: Spontaneous
  Country: US (occurrence: US)
  Receive Date: 20220307
  Receipt Date: 20220307
  Transmission Date: 20220423
  Serious: Yes (Life-Threatening, Hospitalization, Other)
  Sender: FDA-Public Use
  Company Number: US-GLENMARK PHARMACEUTICALS-2022GMK070794

PATIENT
  Age: 30 Year
  Sex: Female

DRUGS (1)
  1. LAMOTRIGINE [Suspect]
     Active Substance: LAMOTRIGINE
     Indication: Seizure
     Dosage: UNK
     Route: 065

REACTIONS (7)
  - Pericardial effusion [Recovered/Resolved]
  - Ejection fraction decreased [Recovered/Resolved]
  - Cardiac arrest [Recovered/Resolved]
  - Eosinophilic myocarditis [Recovered/Resolved]
  - Ventricular tachycardia [Recovered/Resolved]
  - Drug reaction with eosinophilia and systemic symptoms [Unknown]
  - Myocarditis [Recovered/Resolved]
